FAERS Safety Report 24166462 (Version 1)
Quarter: 2024Q3

REPORT INFORMATION
  Report Type: Report from Study
  Country: US (occurrence: US)
  Receive Date: 20240802
  Receipt Date: 20240802
  Transmission Date: 20241017
  Serious: Yes (Other)
  Sender: SAMSUNG BIOEPIS
  Company Number: US-SAMSUNG BIOEPIS-SB-2024-23157

PATIENT
  Age: 62 Year
  Sex: Female

DRUGS (1)
  1. BYOOVIZ [Suspect]
     Active Substance: RANIBIZUMAB-NUNA
     Indication: Retinal vein occlusion
     Route: 065

REACTIONS (1)
  - Pneumonia [Unknown]

NARRATIVE: CASE EVENT DATE: 20240616
